FAERS Safety Report 21201574 (Version 1)
Quarter: 2022Q3

REPORT INFORMATION
  Report Type: Spontaneous
  Country: US (occurrence: None)
  Receive Date: 20220810
  Receipt Date: 20220810
  Transmission Date: 20221027
  Serious: Yes (Other)
  Sender: FDA-Public Use
  Company Number: None

PATIENT
  Age: 70 Year
  Sex: Female
  Weight: 56.7 kg

DRUGS (1)
  1. PROLIA [Suspect]
     Active Substance: DENOSUMAB
     Indication: Osteoporosis prophylaxis
     Dosage: OTHER FREQUENCY : 1 INJECTIONEVERY6M;?
     Dates: end: 20180105

REACTIONS (5)
  - Bone disorder [None]
  - Weight decreased [None]
  - Tooth loss [None]
  - Inflammation [None]
  - Eating disorder [None]
